FAERS Safety Report 19639757 (Version 1)
Quarter: 2021Q3

REPORT INFORMATION
  Report Type: Spontaneous
  Country: US (occurrence: US)
  Receive Date: 20210730
  Receipt Date: 20210730
  Transmission Date: 20211014
  Serious: No
  Sender: FDA-Public Use
  Company Number: US-GW PHARMA-202107USGW03651

PATIENT

DRUGS (1)
  1. EPIDIOLEX [Suspect]
     Active Substance: CANNABIDIOL
     Indication: LENNOX-GASTAUT SYNDROME
     Dosage: 100 MILLIGRAM/MILLILITRE
     Dates: start: 20200619

REACTIONS (3)
  - Alopecia [Unknown]
  - Somnolence [Not Recovered/Not Resolved]
  - Gastrostomy tube site complication [Recovered/Resolved]
